FAERS Safety Report 23724868 (Version 3)
Quarter: 2024Q2

REPORT INFORMATION
  Report Type: Spontaneous
  Country: US (occurrence: US)
  Receive Date: 20240410
  Receipt Date: 20240501
  Transmission Date: 20240715
  Serious: Yes (Other)
  Sender: FDA-Public Use
  Company Number: US-ABBVIE-5711602

PATIENT
  Sex: Male
  Weight: 80 kg

DRUGS (3)
  1. VENCLEXTA [Suspect]
     Active Substance: VENETOCLAX
     Indication: Chronic lymphocytic leukaemia
     Route: 048
     Dates: start: 202311
  2. VENCLEXTA [Suspect]
     Active Substance: VENETOCLAX
     Indication: Chronic lymphocytic leukaemia
     Dosage: STARTER PACK, 28 DAYS, TOTAL CYCLE-7
     Route: 048
     Dates: start: 20230719
  3. GAZYVA [Suspect]
     Active Substance: OBINUTUZUMAB
     Indication: Chronic lymphocytic leukaemia
     Dosage: OF 28 DAYS, COMPLETED 5 CYCLES
     Route: 042
     Dates: start: 202311

REACTIONS (1)
  - Squamous cell carcinoma of skin [Recovered/Resolved]
